FAERS Safety Report 6503602-1 (Version None)
Quarter: 2009Q4

REPORT INFORMATION
  Report Type: 
  Country: None (occurrence: None)
  Receive Date: 20091217
  Receipt Date: 20091208
  Transmission Date: 20100525
  Serious: Yes (Hospitalization)
  Sender: FDA-Public Use
  Company Number: US-ASTRAZENECA-2009SE30689

PATIENT
  Age: 61 Year
  Sex: Female
  Weight: 48.1 kg

DRUGS (12)
  1. SEROQUEL [Suspect]
     Indication: ANXIETY
     Route: 048
     Dates: start: 20080101, end: 20090101
  2. SEROQUEL [Suspect]
     Indication: PANIC ATTACK
     Route: 048
     Dates: start: 20080101, end: 20090101
  3. SEROQUEL [Suspect]
     Indication: POST-TRAUMATIC STRESS DISORDER
     Route: 048
     Dates: start: 20080101, end: 20090101
  4. COUMADIN [Concomitant]
  5. VALIUM [Concomitant]
     Indication: POST-TRAUMATIC STRESS DISORDER
  6. VALIUM [Concomitant]
     Indication: ANXIETY
  7. VALIUM [Concomitant]
     Indication: PANIC ATTACK
  8. EYE DROPS [Concomitant]
     Indication: CATARACT
  9. VITAMIN D [Concomitant]
  10. MULTI-VITAMIN [Concomitant]
  11. VITAMIN B-12 [Concomitant]
  12. NEBULIZER TREATMENTS [Concomitant]

REACTIONS (10)
  - ABASIA [None]
  - CATARACT [None]
  - DYSPNOEA [None]
  - HEADACHE [None]
  - HYPOTENSION [None]
  - LOSS OF CONSCIOUSNESS [None]
  - MALAISE [None]
  - THIRST [None]
  - THROAT TIGHTNESS [None]
  - WEIGHT INCREASED [None]
